FAERS Safety Report 4661083-7 (Version None)
Quarter: 2005Q2

REPORT INFORMATION
  Report Type: 
  Country: None (occurrence: None)
  Receive Date: 20050511
  Receipt Date: 20050503
  Transmission Date: 20051028
  Serious: Yes (Other)
  Sender: FDA-Public Use
  Company Number: GBWYE636903MAY05

PATIENT
  Age: 58 Year
  Sex: Male

DRUGS (1)
  1. MINOCIN [Suspect]
     Indication: ROSACEA
     Dosage: 100MG ONCE DAILY ORAL
     Route: 048
     Dates: start: 19980415, end: 20050412

REACTIONS (2)
  - CONJUNCTIVAL PIGMENTATION [None]
  - PIGMENTATION DISORDER [None]
